FAERS Safety Report 14001141 (Version 1)
Quarter: 2017Q3

REPORT INFORMATION
  Report Type: Spontaneous
  Country: US (occurrence: US)
  Receive Date: 20170922
  Receipt Date: 20170922
  Transmission Date: 20171128
  Serious: Yes (Life-Threatening)
  Sender: FDA-Public Use
  Company Number: US-FRESENIUS KABI-FK201707924

PATIENT
  Age: 7 Week
  Sex: Male

DRUGS (2)
  1. IRON DEXTRAN [Concomitant]
     Active Substance: IRON DEXTRAN
     Indication: PARENTERAL NUTRITION
     Route: 065
  2. DEFEROXAMINE MESYLATE (MANUFACTURER UNKNOWN) [Suspect]
     Active Substance: DEFEROXAMINE MESYLATE
     Indication: CHELATION THERAPY
     Route: 065

REACTIONS (5)
  - Pneumomediastinum [Recovering/Resolving]
  - Drug administered to patient of inappropriate age [Recovering/Resolving]
  - Pneumothorax [Recovering/Resolving]
  - Sepsis [Recovering/Resolving]
  - Respiratory distress [Recovering/Resolving]
